FAERS Safety Report 14559165 (Version 1)
Quarter: 2018Q1

REPORT INFORMATION
  Report Type: Spontaneous
  Country: AT (occurrence: AT)
  Receive Date: 20180221
  Receipt Date: 20180221
  Transmission Date: 20180509
  Serious: Yes (Other)
  Sender: FDA-Public Use
  Company Number: AT-TEVA-818814ISR

PATIENT
  Age: 42 Year
  Sex: Male
  Weight: 89 kg

DRUGS (23)
  1. TRITTICO [Interacting]
     Active Substance: TRAZODONE HYDROCHLORIDE
     Indication: SLEEP DISORDER
     Route: 065
     Dates: start: 2015, end: 20150316
  2. LYRICA [Interacting]
     Active Substance: PREGABALIN
     Indication: SLEEP DISORDER
     Route: 065
     Dates: start: 20150317, end: 20150317
  3. NICORETTE [Suspect]
     Active Substance: NICOTINE
     Indication: PRODUCT USED FOR UNKNOWN INDICATION
     Route: 065
     Dates: start: 20150321
  4. CHLORAL HYDRATE [Suspect]
     Active Substance: CHLORAL HYDRATE
     Route: 065
     Dates: start: 20150320, end: 20150320
  5. SEROQUEL [Interacting]
     Active Substance: QUETIAPINE FUMARATE
     Route: 065
     Dates: start: 20150318
  6. FERRO GRADUMET [Suspect]
     Active Substance: FERROUS SULFATE
     Indication: SLEEP DISORDER
     Route: 065
     Dates: start: 2015
  7. MIRATBENE [Interacting]
     Active Substance: MIRTAZAPINE
     Route: 065
     Dates: start: 2015, end: 2015
  8. DEPAKINE CRONO [Interacting]
     Active Substance: VALPROIC ACID
     Indication: SLEEP DISORDER
     Route: 065
     Dates: start: 2015
  9. LYRICA [Interacting]
     Active Substance: PREGABALIN
     Route: 065
     Dates: start: 20150318, end: 20150318
  10. CHLORAL HYDRATE [Suspect]
     Active Substance: CHLORAL HYDRATE
     Indication: SLEEP DISORDER
     Route: 065
     Dates: start: 20150322, end: 20150322
  11. CHLORAL HYDRATE [Suspect]
     Active Substance: CHLORAL HYDRATE
     Route: 065
     Dates: start: 20150321, end: 20150321
  12. ZOLDEM [Suspect]
     Active Substance: ZOLPIDEM TARTRATE
     Route: 065
     Dates: start: 20150323, end: 20150329
  13. MIRATBENE [Suspect]
     Active Substance: MIRTAZAPINE
     Indication: SLEEP DISORDER
     Route: 065
     Dates: start: 20150409, end: 20150416
  14. SEROQUEL [Interacting]
     Active Substance: QUETIAPINE FUMARATE
     Indication: SLEEP DISORDER
     Route: 065
     Dates: start: 20150317, end: 20150317
  15. ZOLDEM [Suspect]
     Active Substance: ZOLPIDEM TARTRATE
     Indication: SLEEP DISORDER
     Route: 065
     Dates: start: 20150317, end: 20150322
  16. PANTOLOC [Suspect]
     Active Substance: PANTOPRAZOLE SODIUM
     Indication: SLEEP DISORDER
     Route: 065
     Dates: start: 2015
  17. SUBSTITOL [Interacting]
     Active Substance: MORPHINE SULFATE
     Indication: SLEEP DISORDER
     Dosage: SINCE AUTUMN
     Route: 065
     Dates: start: 2014
  18. TRITTICO [Interacting]
     Active Substance: TRAZODONE HYDROCHLORIDE
     Route: 065
     Dates: start: 20150317
  19. LYRICA [Interacting]
     Active Substance: PREGABALIN
     Route: 065
     Dates: start: 20150319
  20. JATROSOM [Interacting]
     Active Substance: TRANYLCYPROMINE SULFATE\TRIFLUOPERAZINE HYDROCHLORIDE
     Indication: SLEEP DISORDER
     Route: 065
     Dates: start: 20150414
  21. JATROSOM [Interacting]
     Active Substance: TRANYLCYPROMINE SULFATE\TRIFLUOPERAZINE HYDROCHLORIDE
     Route: 065
     Dates: start: 20150323, end: 20150406
  22. JATROSOM [Interacting]
     Active Substance: TRANYLCYPROMINE SULFATE\TRIFLUOPERAZINE HYDROCHLORIDE
     Route: 065
     Dates: start: 20150407, end: 20150413
  23. AURORIX [Suspect]
     Active Substance: MOCLOBEMIDE
     Indication: PRODUCT USED FOR UNKNOWN INDICATION
     Route: 065
     Dates: start: 2015, end: 20150322

REACTIONS (8)
  - Oedema peripheral [Recovered/Resolved]
  - Nervousness [Unknown]
  - Depressed mood [Unknown]
  - Pollakiuria [Unknown]
  - Disorientation [Unknown]
  - Drug interaction [Unknown]
  - Confusional state [Recovered/Resolved]
  - Restlessness [Unknown]

NARRATIVE: CASE EVENT DATE: 2015
